FAERS Safety Report 13094686 (Version 11)
Quarter: 2018Q2

REPORT INFORMATION
  Report Type: Report from Study
  Country: AT (occurrence: AT)
  Receive Date: 20170106
  Receipt Date: 20180620
  Transmission Date: 20180711
  Serious: Yes (Death, Hospitalization, Other)
  Sender: FDA-Public Use
  Company Number: AT-INCYTE CORPORATION-2016IN008085

PATIENT

DRUGS (12)
  1. PSYCHOPAX [Concomitant]
     Active Substance: DIAZEPAM
     Indication: PRODUCT USED FOR UNKNOWN INDICATION
     Dosage: 15 GTT, UNK (IN CASE OF ANXIETY)
     Route: 065
  2. JAKAVI [Suspect]
     Active Substance: RUXOLITINIB
     Dosage: 15 MG, BID
     Route: 065
  3. RAMIPRIL. [Concomitant]
     Active Substance: RAMIPRIL
     Indication: PRODUCT USED FOR UNKNOWN INDICATION
     Dosage: 10 MG, QD
     Route: 065
  4. OLEOVIT D3 [Concomitant]
     Active Substance: CHOLECALCIFEROL
     Indication: PRODUCT USED FOR UNKNOWN INDICATION
     Dosage: 30 DF, QW
     Route: 065
  5. SYMBICORT [Concomitant]
     Active Substance: BUDESONIDE\FORMOTEROL FUMARATE DIHYDRATE
     Indication: CHRONIC OBSTRUCTIVE PULMONARY DISEASE
     Dosage: UNK UNK, BID
     Route: 055
  6. PREGABALIN. [Concomitant]
     Active Substance: PREGABALIN
     Indication: PRODUCT USED FOR UNKNOWN INDICATION
     Dosage: 75 MG, QD (1-0-0)
     Route: 065
  7. JAKAVI [Suspect]
     Active Substance: RUXOLITINIB
     Dosage: 10 MG, BID (1-0-1)
     Route: 065
     Dates: start: 201607
  8. LYRICA [Concomitant]
     Active Substance: PREGABALIN
     Indication: PRODUCT USED FOR UNKNOWN INDICATION
     Dosage: 150 MG, UNK
     Route: 065
  9. BERODUAL [Concomitant]
     Active Substance: FENOTEROL HYDROBROMIDE\IPRATROPIUM BROMIDE
     Indication: PRODUCT USED FOR UNKNOWN INDICATION
     Dosage: UNK, PRN (IF REQUIRED)
     Route: 065
  10. JAKAVI [Suspect]
     Active Substance: RUXOLITINIB
     Indication: MYELOFIBROSIS
     Dosage: 10 MG, BID (1-0-1)
     Route: 048
     Dates: start: 20120220
  11. PANTOLOC [Concomitant]
     Active Substance: PANTOPRAZOLE SODIUM
     Indication: PRODUCT USED FOR UNKNOWN INDICATION
     Dosage: 40 MG, QD (1-0-0)
     Route: 065
  12. HYDAL [Concomitant]
     Active Substance: HYDROMORPHONE HYDROCHLORIDE
     Indication: PRODUCT USED FOR UNKNOWN INDICATION
     Dosage: 2 MG, BID
     Route: 065

REACTIONS (23)
  - Abdominal pain [Unknown]
  - Diverticular perforation [Fatal]
  - Platelet count increased [Unknown]
  - Weight decreased [Unknown]
  - Squamous cell carcinoma of the tongue [Unknown]
  - Hypotension [Fatal]
  - Platelet count decreased [Fatal]
  - Acute kidney injury [Fatal]
  - Chronic obstructive pulmonary disease [Fatal]
  - Anaemia [Fatal]
  - White blood cell count decreased [Fatal]
  - Ascites [Fatal]
  - Diverticulitis [Unknown]
  - Renal impairment [Fatal]
  - Adrenal atrophy [Fatal]
  - Pulmonary fibrosis [Fatal]
  - Intervertebral disc degeneration [Fatal]
  - Arteriosclerosis [Fatal]
  - Thyroid cyst [Fatal]
  - Pulmonary oedema [Fatal]
  - Bone density decreased [Fatal]
  - Second primary malignancy [Unknown]
  - Dysphagia [Fatal]

NARRATIVE: CASE EVENT DATE: 20160720
